FAERS Safety Report 19068313 (Version 1)
Quarter: 2021Q1

REPORT INFORMATION
  Report Type: Report from Study
  Country: IT (occurrence: IT)
  Receive Date: 20210329
  Receipt Date: 20210329
  Transmission Date: 20210420
  Serious: Yes (Hospitalization)
  Sender: FDA-Public Use
  Company Number: IT-ROCHE-2788576

PATIENT
  Age: 66 Year
  Sex: Male
  Weight: 67 kg

DRUGS (26)
  1. PREDNISONE. [Concomitant]
     Active Substance: PREDNISONE
     Dates: start: 20210309
  2. TAMSULOSIN [Concomitant]
     Active Substance: TAMSULOSIN
     Indication: URINARY RETENTION
     Dates: start: 20201027
  3. IRON [Concomitant]
     Active Substance: IRON
     Dates: start: 20201215
  4. OMEPRAZOLE. [Concomitant]
     Active Substance: OMEPRAZOLE
     Dosage: GASTRIC PROTECTION
     Dates: start: 20210207
  5. FILGRASTIM [Concomitant]
     Active Substance: FILGRASTIM
     Indication: NEUTROPENIA
     Dosage: 30 UG
     Dates: start: 20210310, end: 20210312
  6. PREGABALIN. [Concomitant]
     Active Substance: PREGABALIN
     Indication: MYALGIA
     Dates: start: 20210112
  7. PERMIXON [Concomitant]
     Active Substance: HERBALS\SAW PALMETTO
     Dates: start: 20201217
  8. ATEZOLIZUMAB. [Suspect]
     Active Substance: ATEZOLIZUMAB
     Indication: NEOPLASM
     Dosage: MOST RECENT DOSE PRIOR TO AE AND SAE ONSET ON 05?JAN?2021 AT 2:20 PM TILL 2:50 PM (TOTAL VOLUME 250
     Route: 041
     Dates: start: 20200914
  9. PARACETAMOL [Concomitant]
     Active Substance: ACETAMINOPHEN
     Indication: ARTHRALGIA
     Dates: start: 20201007
  10. ACICLOVIR [Concomitant]
     Active Substance: ACYCLOVIR
     Indication: PYREXIA
     Dates: start: 20210215
  11. FOLINA [Concomitant]
     Dates: start: 20210215
  12. RO7122290 (FAP?4?1BBL MAB) [Suspect]
     Active Substance: INVESTIGATIONAL PRODUCT
     Indication: NEOPLASM
     Dosage: MOST RECENT DOSE PRIOR TO AE AND SAE ONSET ON 19?JAN?2021 AT 1:02 PM TILL 1:32 PM (TOTAL VOLUME 50 M
     Route: 041
     Dates: start: 20200914
  13. PREDNISONE. [Concomitant]
     Active Substance: PREDNISONE
     Indication: PYREXIA
     Dates: start: 20210207, end: 20210208
  14. PREDNISONE. [Concomitant]
     Active Substance: PREDNISONE
     Indication: ERYTHEMA NODOSUM
     Dates: start: 20210207, end: 20210208
  15. SULFAMETOXAZOL/TRIMETOPRIM [Concomitant]
     Active Substance: SULFAMETHOXAZOLE\TRIMETHOPRIM
     Indication: PYREXIA
     Dates: start: 20210215
  16. BISOPROLOL [Concomitant]
     Active Substance: BISOPROLOL
     Indication: HYPERTENSION
     Dates: start: 20210223
  17. PARACETAMOL [Concomitant]
     Active Substance: ACETAMINOPHEN
     Indication: PYREXIA
     Dates: start: 20210206, end: 20210207
  18. LOPERAMIDE [Concomitant]
     Active Substance: LOPERAMIDE
     Indication: DIARRHOEA
     Dates: start: 20210112
  19. PREDNISONE. [Concomitant]
     Active Substance: PREDNISONE
     Dates: start: 20210302, end: 20210308
  20. PARACETAMOL [Concomitant]
     Active Substance: ACETAMINOPHEN
     Indication: MYALGIA
     Dates: start: 20201007
  21. PIPERACILLIN AND TAZOBACTAM [Concomitant]
     Active Substance: PIPERACILLIN SODIUM\TAZOBACTAM SODIUM
     Indication: PYREXIA
     Dates: start: 20210207, end: 20210215
  22. CACIT D3 [Concomitant]
     Active Substance: CALCIUM\CHOLECALCIFEROL
     Dosage: NUTRITIONAL SUPPLEMENT
     Dates: start: 20201019
  23. AMOXILLIN [Concomitant]
     Active Substance: AMOXICILLIN
     Indication: ERYTHEMA NODOSUM
     Dates: start: 20210126
  24. PREDNISONE. [Concomitant]
     Active Substance: PREDNISONE
     Dates: start: 20210215, end: 20210301
  25. PREDNISONE. [Concomitant]
     Active Substance: PREDNISONE
     Dates: start: 20210129, end: 20210208
  26. HEPARIN [Concomitant]
     Active Substance: HEPARIN SODIUM
     Dates: start: 20210208

REACTIONS (1)
  - Neutropenia [Recovered/Resolved]

NARRATIVE: CASE EVENT DATE: 20210309
